FAERS Safety Report 21352217 (Version 1)
Quarter: 2022Q3

REPORT INFORMATION
  Report Type: Spontaneous
  Country: AU (occurrence: AU)
  Receive Date: 20220920
  Receipt Date: 20220920
  Transmission Date: 20221027
  Serious: Yes (Other)
  Sender: FDA-Public Use
  Company Number: AU-AMGEN-AUSSP2022159646

PATIENT
  Age: 77 Year
  Sex: Female

DRUGS (2)
  1. PROLIA [Suspect]
     Active Substance: DENOSUMAB
     Indication: Osteoporosis
     Dosage: 60 MILLIGRAM, Q6MO
     Route: 058
     Dates: start: 2015
  2. PROLIA [Suspect]
     Active Substance: DENOSUMAB
     Dosage: 60 MILLIGRAM, Q6MO
     Route: 058
     Dates: start: 2020

REACTIONS (4)
  - Spinal fracture [Unknown]
  - Thoracic vertebral fracture [Unknown]
  - Inappropriate schedule of product administration [Unknown]
  - Fracture [Unknown]

NARRATIVE: CASE EVENT DATE: 20190101
